FAERS Safety Report 7973033-6 (Version None)
Quarter: 2011Q4

REPORT INFORMATION
  Report Type: 
  Country: None (occurrence: None)
  Receive Date: 20111213
  Receipt Date: 20111205
  Transmission Date: 20120403
  Serious: Yes (Other)
  Sender: FDA-Public Use
  Company Number: US-US-EMD SERONO, INC.-7100037

PATIENT
  Sex: Female
  Weight: 86 kg

DRUGS (4)
  1. INSULIN PUMP [Concomitant]
     Indication: TYPE 1 DIABETES MELLITUS
  2. REBIF [Suspect]
     Indication: MULTIPLE SCLEROSIS
     Route: 058
     Dates: start: 20111014
  3. LASIX [Concomitant]
     Indication: RENAL FAILURE CHRONIC
  4. CIPROFLOXACIN [Concomitant]

REACTIONS (6)
  - HYPOGLYCAEMIC SEIZURE [None]
  - INJECTION SITE ERYTHEMA [None]
  - INFLUENZA LIKE ILLNESS [None]
  - URINARY TRACT INFECTION [None]
  - JOINT SWELLING [None]
  - INJECTION SITE PAIN [None]
